FAERS Safety Report 6480300-4 (Version None)
Quarter: 2009Q4

REPORT INFORMATION
  Report Type: 
  Country: None (occurrence: None)
  Receive Date: 20091208
  Receipt Date: 20091126
  Transmission Date: 20100525
  Serious: Yes (Hospitalization)
  Sender: FDA-Public Use
  Company Number: DE-ELI_LILLY_AND_COMPANY-DE200911004683

PATIENT
  Sex: Female

DRUGS (15)
  1. ZYPREXA [Suspect]
     Indication: SCHIZOPHRENIA
     Dosage: 2.5 MG, DAILY (1/D)
     Route: 048
     Dates: start: 20090824, end: 20090826
  2. ZYPREXA [Suspect]
     Dosage: 5 MG, DAILY (1/D)
     Route: 048
     Dates: start: 20090827, end: 20090831
  3. ZYPREXA [Suspect]
     Dosage: 7.5 MG, DAILY (1/D)
     Route: 048
     Dates: start: 20090901, end: 20090908
  4. HALDOL [Concomitant]
     Dosage: 4 MG, DAILY (1/D)
     Route: 048
     Dates: start: 20090731, end: 20090804
  5. HALDOL [Concomitant]
     Dosage: 6 MG, DAILY (1/D)
     Route: 048
     Dates: start: 20090805, end: 20090806
  6. HALDOL [Concomitant]
     Dosage: 8 MG, DAILY (1/D)
     Route: 048
     Dates: start: 20090807, end: 20090812
  7. HALDOL [Concomitant]
     Dosage: 10 MG, DAILY (1/D)
     Route: 048
     Dates: start: 20090813, end: 20090813
  8. HALDOL [Concomitant]
     Dosage: 4 MG, DAILY (1/D)
     Route: 048
     Dates: start: 20090820, end: 20090825
  9. HALDOL [Concomitant]
     Dosage: 2 MG, DAILY (1/D)
     Route: 048
     Dates: start: 20090826, end: 20090827
  10. LEVOTHYROXINE SODIUM [Concomitant]
     Dosage: 100 UG, DAILY (1/D)
     Route: 048
  11. OMEPRAZOLE [Concomitant]
     Dosage: 20 MG, DAILY (1/D)
     Route: 048
  12. ZOPICLON [Concomitant]
     Dosage: 7.5 MG, DAILY (1/D)
     Route: 048
  13. LORAZEPAM [Concomitant]
     Dosage: 1.5 MG, DAILY (1/D)
     Route: 048
     Dates: start: 20090813, end: 20090824
  14. LORAZEPAM [Concomitant]
     Dosage: 1.5 MG, DAILY (1/D)
     Route: 048
     Dates: start: 20090825, end: 20090831
  15. LORAZEPAM [Concomitant]
     Dosage: 0.5 MG, DAILY (1/D)
     Route: 048
     Dates: start: 20090901, end: 20090902

REACTIONS (3)
  - DRUG INTERACTION [None]
  - LYMPHOCYTE COUNT INCREASED [None]
  - NEUTROPENIA [None]
